FAERS Safety Report 9199956 (Version 2)
Quarter: 2013Q3

REPORT INFORMATION
  Report Type: Spontaneous
  Country: AU (occurrence: AU)
  Receive Date: 20130329
  Receipt Date: 20130712
  Transmission Date: 20140515
  Serious: Yes (Other)
  Sender: FDA-Public Use
  Company Number: AU-ROCHE-1208351

PATIENT
  Age: 35 Year
  Sex: Female

DRUGS (6)
  1. HERCEPTIN [Suspect]
     Indication: BREAST CANCER
     Route: 065
  2. XELODA [Suspect]
     Indication: METASTATIC NEOPLASM
     Route: 065
  3. ABRAXANE [Concomitant]
     Indication: METASTATIC NEOPLASM
  4. LAPATINIB [Concomitant]
     Indication: METASTATIC NEOPLASM
  5. PACLITAXEL [Concomitant]
     Indication: METASTATIC NEOPLASM
  6. CARBOPLATIN [Concomitant]
     Indication: METASTATIC NEOPLASM

REACTIONS (2)
  - Disease progression [Unknown]
  - Pain [Unknown]
